FAERS Safety Report 10184059 (Version 3)
Quarter: 2014Q2

REPORT INFORMATION
  Report Type: Report from Study
  Country: CH (occurrence: CH)
  Receive Date: 20140520
  Receipt Date: 20140619
  Transmission Date: 20141212
  Serious: Yes (Hospitalization)
  Sender: FDA-Public Use
  Company Number: CH-VIIV HEALTHCARE LIMITED-B0995109A

PATIENT
  Age: 65 Year
  Sex: Female
  Weight: 62 kg

DRUGS (8)
  1. MARAVIROC [Suspect]
     Indication: HIV INFECTION
     Dosage: 300MG TWICE PER DAY
     Route: 048
     Dates: start: 20050614
  2. TRUVADA [Concomitant]
     Indication: HIV INFECTION
     Dosage: 300MG PER DAY
     Route: 048
     Dates: start: 20110606
  3. ZYPREXA [Concomitant]
     Indication: DEPRESSION
     Dosage: 10MG PER DAY
     Route: 048
  4. DIAMICRON [Concomitant]
     Indication: DIABETES MELLITUS
     Dosage: 30MG PER DAY
     Route: 048
     Dates: start: 20100202
  5. PANTAZOL [Concomitant]
     Indication: ABDOMINAL PAIN UPPER
     Dosage: 40MG AS REQUIRED
     Route: 048
     Dates: start: 20091028
  6. VENTOLIN [Concomitant]
     Indication: SEASONAL ALLERGY
     Route: 045
     Dates: start: 20051103
  7. TEMESTA [Concomitant]
     Indication: SLEEP DISORDER THERAPY
     Dosage: 1MG AS REQUIRED
     Route: 048
  8. IBUPROFEN [Concomitant]
     Indication: TOOTHACHE
     Dosage: 400MG AS REQUIRED
     Route: 048
     Dates: start: 20121009

REACTIONS (1)
  - Syncope [Recovered/Resolved]
